FAERS Safety Report 13132088 (Version 1)
Quarter: 2017Q1

REPORT INFORMATION
  Report Type: Report from Study
  Country: US (occurrence: US)
  Receive Date: 20170119
  Receipt Date: 20170119
  Transmission Date: 20170428
  Serious: Yes (Other)
  Sender: FDA-Public Use
  Company Number: US-GILEAD-2017-0254103

PATIENT
  Age: 73 Year
  Sex: Female

DRUGS (1)
  1. IDELALISIB [Suspect]
     Active Substance: IDELALISIB
     Indication: LYMPHOMA
     Dosage: 150 MG, BID
     Route: 048
     Dates: start: 20161125, end: 20170106

REACTIONS (4)
  - Neck pain [Unknown]
  - Drug ineffective [Recovered/Resolved]
  - Abdominal pain [Unknown]
  - Disease progression [Not Recovered/Not Resolved]

NARRATIVE: CASE EVENT DATE: 20161223
